FAERS Safety Report 6984015-5 (Version None)
Quarter: 2010Q3

REPORT INFORMATION
  Report Type: 
  Country: None (occurrence: None)
  Receive Date: 20100915
  Receipt Date: 20090507
  Transmission Date: 20110219
  Serious: No
  Sender: FDA-Public Use
  Company Number: US-WYE-H09268809

PATIENT
  Age: 49 Year
  Sex: Female
  Weight: 54.48 kg

DRUGS (1)
  1. ADVIL PM [Suspect]
     Indication: PAIN
     Dosage: 1 CAPLET DAILY AT BEDTIME
     Route: 048
     Dates: start: 20070101, end: 20090329

REACTIONS (2)
  - NIGHT SWEATS [None]
  - PALPITATIONS [None]
